FAERS Safety Report 24849105 (Version 1)
Quarter: 2025Q1

REPORT INFORMATION
  Report Type: Spontaneous
  Country: US (occurrence: None)
  Receive Date: 20250115
  Receipt Date: 20250115
  Transmission Date: 20250409
  Serious: No
  Sender: FDA-CTU
  Company Number: None

PATIENT
  Age: 50 Year
  Sex: Female

DRUGS (1)
  1. HUMIRA [Suspect]
     Active Substance: ADALIMUMAB
     Indication: Hidradenitis
     Dosage: FREQUENCY : WEEKLY;?INJECT 40MG SUBCUTANEOUSLY ONCE A WEEK STARTING ON DAY 29 AS DIRECTED?
     Route: 058
     Dates: start: 202301

REACTIONS (1)
  - Diverticulitis [None]
